FAERS Safety Report 6693827-7 (Version None)
Quarter: 2010Q2

REPORT INFORMATION
  Report Type: 
  Country: None (occurrence: None)
  Receive Date: 20100423
  Receipt Date: 20100419
  Transmission Date: 20101027
  Serious: Yes (Hospitalization)
  Sender: FDA-Public Use
  Company Number: CA-BRISTOL-MYERS SQUIBB COMPANY-15038078

PATIENT
  Age: 51 Year
  Sex: Female

DRUGS (4)
  1. ORENCIA [Suspect]
     Indication: RHEUMATOID ARTHRITIS
     Dosage: LAST DOSE WAS ON 23-FEB-2010.
     Route: 042
     Dates: start: 20080303
  2. PLAQUENIL [Concomitant]
     Route: 048
     Dates: start: 20040101
  3. IMURAN [Concomitant]
     Route: 048
     Dates: start: 20040101
  4. CORTISONE [Concomitant]
     Route: 048
     Dates: start: 20081002

REACTIONS (2)
  - BRONCHITIS [None]
  - CARDIAC DISORDER [None]
